FAERS Safety Report 7335261-2 (Version None)
Quarter: 2011Q1

REPORT INFORMATION
  Report Type: 
  Country: None (occurrence: None)
  Receive Date: 20110307
  Receipt Date: 20110228
  Transmission Date: 20110831
  Serious: No
  Sender: FDA-Public Use
  Company Number: US-PFIZER INC-2011043290

PATIENT
  Sex: Male

DRUGS (8)
  1. GLUCOTROL [Suspect]
     Dosage: 2.5 MG, DAILY
     Dates: start: 20101107
  2. ZETIA [Concomitant]
     Indication: BLOOD CHOLESTEROL INCREASED
     Dosage: 5 MG, UNK
     Dates: start: 20031101
  3. METFORMIN HCL [Suspect]
     Indication: DIABETES MELLITUS
     Dosage: 250 MG, DAILY
     Dates: start: 20101106, end: 20101106
  4. TESTIM [Suspect]
     Indication: ASTHENIA
     Dosage: 50 MG, 1X/DAY
     Route: 062
     Dates: start: 20101021
  5. METOPROLOL [Concomitant]
     Indication: HEART VALVE REPLACEMENT
     Dosage: 5 MG, UNK
     Dates: start: 20031101
  6. GEMFIBROZIL [Concomitant]
     Indication: BLOOD CHOLESTEROL INCREASED
     Dosage: 5 MG, UNK
     Dates: start: 20031101
  7. GLUCOTROL [Suspect]
     Indication: DIABETES MELLITUS
     Dosage: 5 MG, DAILY
     Dates: start: 20101106, end: 20101106
  8. ASPIRIN [Concomitant]
     Indication: HEART VALVE REPLACEMENT
     Dosage: 81 MG, UNK
     Dates: start: 20031101

REACTIONS (3)
  - BLOOD GLUCOSE FLUCTUATION [None]
  - BLOOD GLUCOSE DECREASED [None]
  - OFF LABEL USE [None]
